FAERS Safety Report 24208021 (Version 1)
Quarter: 2024Q3

REPORT INFORMATION
  Report Type: Report from Study
  Country: CA (occurrence: CA)
  Receive Date: 20240814
  Receipt Date: 20240814
  Transmission Date: 20241017
  Serious: Yes (Other)
  Sender: CSL BEHRING
  Company Number: CA-BEH-2023154011

PATIENT
  Age: 10 Month
  Sex: Female
  Weight: 8 kg

DRUGS (2)
  1. HIZENTRA [Suspect]
     Active Substance: HUMAN IMMUNOGLOBULIN G
     Indication: Primary immunodeficiency syndrome
     Dosage: 1 GRAM, QW
     Route: 065
     Dates: start: 20221230
  2. HIZENTRA [Suspect]
     Active Substance: HUMAN IMMUNOGLOBULIN G
     Dosage: 1 GRAM, QW
     Route: 065
     Dates: start: 20221230

REACTIONS (5)
  - Asthmatic crisis [Unknown]
  - Irritability [Unknown]
  - Crying [Unknown]
  - Unintentional medical device removal [Unknown]
  - Asthma [Not Recovered/Not Resolved]
